FAERS Safety Report 19729279 (Version 1)
Quarter: 2021Q3

REPORT INFORMATION
  Report Type: Other
  Country: IT (occurrence: IT)
  Receive Date: 20210821
  Receipt Date: 20210821
  Transmission Date: 20211014
  Serious: Yes (Other)
  Sender: FDA-Public Use
  Company Number: IT-ROCHE-2892837

PATIENT
  Age: 70 Year
  Sex: Female

DRUGS (5)
  1. BEVACIZUMAB. [Suspect]
     Active Substance: BEVACIZUMAB
     Route: 065
     Dates: start: 20180314
  2. BEVACIZUMAB. [Suspect]
     Active Substance: BEVACIZUMAB
     Route: 065
     Dates: start: 20180221
  3. BEVACIZUMAB. [Suspect]
     Active Substance: BEVACIZUMAB
     Indication: CERVIX CANCER METASTATIC
     Dosage: SIX CYCLES EVERY 3 WEEKS
     Route: 065
     Dates: start: 201709
  4. CISPLATIN. [Concomitant]
     Active Substance: CISPLATIN
     Dosage: SIX CYCLES EVERY 3 WEEKS
     Dates: start: 201709
  5. PACLITAXEL. [Concomitant]
     Active Substance: PACLITAXEL
     Dosage: SIX CYCLES EVERY 3 WEEKS
     Dates: start: 201709

REACTIONS (1)
  - Cerebral amyloid angiopathy [Recovered/Resolved]
